FAERS Safety Report 4659820-0 (Version None)
Quarter: 2005Q2

REPORT INFORMATION
  Report Type: 
  Country: None (occurrence: None)
  Receive Date: 20050510
  Receipt Date: 20050502
  Transmission Date: 20051028
  Serious: No
  Sender: FDA-Public Use
  Company Number: 05P-163-0299090-00

PATIENT
  Age: 61 Year
  Sex: Female
  Weight: 58.9676 kg

DRUGS (1)
  1. SYNTHROID [Suspect]
     Indication: HYPOTHYROIDISM
     Dosage: 125 MCG, 1 IN 1 D, PER ORAL
     Route: 048
     Dates: end: 20050424

REACTIONS (2)
  - HAIR COLOUR CHANGES [None]
  - OVARIAN CYST [None]
